FAERS Safety Report 12594189 (Version 2)
Quarter: 2016Q3

REPORT INFORMATION
  Report Type: Spontaneous
  Country: BR (occurrence: BR)
  Receive Date: 20160726
  Receipt Date: 20160801
  Transmission Date: 20161109
  Serious: Yes (Other)
  Sender: FDA-Public Use
  Company Number: BR-PFIZER INC-2016346305

PATIENT
  Age: 35 Year
  Sex: Female
  Weight: 78 kg

DRUGS (5)
  1. XALATAN [Suspect]
     Active Substance: LATANOPROST
     Indication: GLAUCOMA
     Dosage: 1 DROP IN EACH EYE (3UG) PER DAY
     Route: 047
     Dates: start: 20110830
  2. CRESTOR [Concomitant]
     Active Substance: ROSUVASTATIN CALCIUM
     Dosage: 1 TABLET, 1X/DAY
     Route: 048
     Dates: start: 2015
  3. AMATO [Concomitant]
     Active Substance: TOPIRAMATE
     Dosage: 1 TABLET OF 25 MG PER DAY
     Route: 048
     Dates: start: 201601
  4. BUPIUM [Concomitant]
     Indication: ANXIETY
     Dosage: 1 TABLET OF 150 MG PER DAY
     Route: 048
     Dates: start: 201601
  5. GLIFAGE [Concomitant]
     Active Substance: METFORMIN HYDROCHLORIDE

REACTIONS (5)
  - Blood cholesterol increased [Not Recovered/Not Resolved]
  - Weight decreased [Not Recovered/Not Resolved]
  - Blood prolactin increased [Not Recovered/Not Resolved]
  - Blood glucose increased [Not Recovered/Not Resolved]
  - Neoplasm [Not Recovered/Not Resolved]

NARRATIVE: CASE EVENT DATE: 2012
